FAERS Safety Report 6900533-X (Version None)
Quarter: 2010Q3

REPORT INFORMATION
  Report Type: 
  Country: None (occurrence: None)
  Receive Date: 20100803
  Receipt Date: 20100727
  Transmission Date: 20110219
  Serious: Yes (Hospitalization)
  Sender: FDA-Public Use
  Company Number: DE-TEVA-242856ISR

PATIENT
  Age: 68 Year
  Sex: Male
  Weight: 76 kg

DRUGS (19)
  1. FLUOROURACIL [Suspect]
     Indication: COLORECTAL CANCER METASTATIC
     Route: 042
     Dates: start: 20090908
  2. FOLINIC ACID [Suspect]
     Indication: COLORECTAL CANCER METASTATIC
     Route: 042
     Dates: start: 20090908
  3. IRINOTECAN HYDROCHLORIDE [Suspect]
     Indication: COLORECTAL CANCER METASTATIC
     Route: 042
     Dates: start: 20090908
  4. BEVACIZUMAB [Suspect]
     Indication: COLORECTAL CANCER METASTATIC
     Route: 042
     Dates: start: 20090908
  5. ALLOPURINOL [Concomitant]
  6. PREDNISOLONE [Concomitant]
  7. THEOPHYLLINE [Concomitant]
  8. TORSEMIDE [Concomitant]
  9. LISINOPRIL [Concomitant]
  10. POTASSIUM CHLORIDE [Concomitant]
  11. SIMVASTATIN [Concomitant]
  12. FENTANYL CITRATE [Concomitant]
  13. ALIZAPRIDE HYDROCHLORIDE [Concomitant]
  14. TIOTROPIUM BROMIDE [Concomitant]
  15. ALBUTEROL [Concomitant]
  16. BAMBUTEROL [Concomitant]
  17. AMPHOTERICIN B [Concomitant]
  18. BENZYDAMINE HYDROCHLORIDE [Concomitant]
  19. METOCLOPRAMIDE HYDROCHLORIDE [Concomitant]

REACTIONS (1)
  - MUCOSAL INFLAMMATION [None]
